FAERS Safety Report 9589008 (Version 1)
Quarter: 2013Q4

REPORT INFORMATION
  Report Type: Spontaneous
  Country: US (occurrence: US)
  Receive Date: 20131003
  Receipt Date: 20131003
  Transmission Date: 20140711
  Serious: No
  Sender: FDA-Public Use
  Company Number: US-AMGEN-USASP2012067104

PATIENT
  Age: 23 Year
  Sex: Female
  Weight: 73 kg

DRUGS (4)
  1. ENBREL [Suspect]
     Indication: RHEUMATOID ARTHRITIS
     Dosage: 50 MG, QWK
     Route: 058
  2. MORTIN [Concomitant]
     Dosage: 400 MG, UNK
     Route: 048
  3. VICODIN [Concomitant]
     Dosage: 5-500 MG, UNK
     Route: 048
  4. NUVARING [Concomitant]
     Dosage: UNK

REACTIONS (1)
  - Nasopharyngitis [Unknown]
